FAERS Safety Report 5729671-4 (Version None)
Quarter: 2008Q2

REPORT INFORMATION
  Report Type: 
  Country: None (occurrence: None)
  Receive Date: 20080506
  Receipt Date: 20080501
  Transmission Date: 20081010
  Serious: Yes (Other)
  Sender: FDA-Public Use
  Company Number: IN-BOEHRINGER INGELHEIM GMBH, GERMANY-2008-BP-06914RO

PATIENT
  Age: 52 Year
  Sex: Female

DRUGS (4)
  1. FLUCONAZOLE [Suspect]
     Indication: TINEA VERSICOLOUR
  2. FLUCONAZOLE [Suspect]
     Route: 048
  3. KETOCONAZOLE [Concomitant]
     Indication: ALLERGY TEST
     Route: 048
  4. ITRACONAZOLE [Concomitant]
     Indication: ALLERGY TEST
     Route: 048

REACTIONS (1)
  - DRUG ERUPTION [None]
